FAERS Safety Report 25354679 (Version 1)
Quarter: 2025Q2

REPORT INFORMATION
  Report Type: Report from Study
  Country: DE (occurrence: DE)
  Receive Date: 20250524
  Receipt Date: 20250524
  Transmission Date: 20250717
  Serious: Yes (Other)
  Sender: ROCHE
  Company Number: DE-ROCHE-3476148

PATIENT
  Age: 61 Year
  Sex: Female
  Weight: 45 kg

DRUGS (1)
  1. OCREVUS [Suspect]
     Active Substance: OCRELIZUMAB
     Indication: Secondary progressive multiple sclerosis
     Route: 042
     Dates: start: 20190124

REACTIONS (2)
  - Off label use [Unknown]
  - IgG deficiency [Not Recovered/Not Resolved]

NARRATIVE: CASE EVENT DATE: 20190124
